FAERS Safety Report 15842453 (Version 1)
Quarter: 2019Q1

REPORT INFORMATION
  Report Type: Spontaneous
  Country: US (occurrence: US)
  Receive Date: 20190117
  Receipt Date: 20190117
  Transmission Date: 20190417
  Serious: No
  Sender: FDA-Public Use
  Company Number: None

PATIENT
  Age: 69 Year
  Sex: Female
  Weight: 49.5 kg

DRUGS (10)
  1. OMEGA 3 [Concomitant]
     Active Substance: OMEGA-3 FATTY ACIDS
  2. REGADENOSON [Suspect]
     Active Substance: REGADENOSON
     Indication: CARDIAC STRESS TEST
     Route: 042
     Dates: start: 20190109, end: 20190109
  3. CURCUMIN [Concomitant]
     Active Substance: CURCUMIN
  4. ALIVE [Concomitant]
  5. COQ10 [Concomitant]
     Active Substance: UBIDECARENONE
  6. TURMERIC [Concomitant]
     Active Substance: HERBALS\TURMERIC
  7. QUNOL [Concomitant]
  8. GABAPENTIN. [Concomitant]
     Active Substance: GABAPENTIN
  9. HYDROCODONE [Concomitant]
     Active Substance: HYDROCODONE
  10. DAILY WOMEN^S VITAMIN [Concomitant]

REACTIONS (9)
  - Tenderness [None]
  - Flushing [None]
  - Nausea [None]
  - Fatigue [None]
  - Asthenia [None]
  - Mobility decreased [None]
  - Headache [None]
  - Dizziness [None]
  - Throat tightness [None]

NARRATIVE: CASE EVENT DATE: 20190109
